FAERS Safety Report 11006340 (Version 1)
Quarter: 2015Q2

REPORT INFORMATION
  Report Type: Spontaneous
  Country: US (occurrence: US)
  Receive Date: 20150409
  Receipt Date: 20150409
  Transmission Date: 20150821
  Serious: No
  Sender: FDA-Public Use
  Company Number: US-ALLERGAN-1416682US

PATIENT
  Sex: Female

DRUGS (6)
  1. CINNAMON                           /01647501/ [Concomitant]
     Active Substance: CINNAMON
  2. VITAMIN D                          /00107901/ [Concomitant]
     Active Substance: ERGOCALCIFEROL
  3. VITAMINS                           /00067501/ [Concomitant]
     Active Substance: VITAMINS
  4. COQ10                              /00517201/ [Concomitant]
  5. LATISSE [Suspect]
     Active Substance: BIMATOPROST
     Indication: PRODUCT USED FOR UNKNOWN INDICATION
  6. CALCIUM [Concomitant]
     Active Substance: CALCIUM

REACTIONS (1)
  - Eye irritation [Unknown]
